FAERS Safety Report 7371872-6 (Version None)
Quarter: 2011Q1

REPORT INFORMATION
  Report Type: 
  Country: None (occurrence: None)
  Receive Date: 20110322
  Receipt Date: 20110322
  Transmission Date: 20110831
  Serious: Yes (Life-Threatening, Hospitalization)
  Sender: FDA-Public Use
  Company Number: None

PATIENT
  Sex: Female
  Weight: 60 kg

DRUGS (1)
  1. PACLITAXEL [Suspect]
     Indication: OVARIAN CANCER
     Dosage: 305MG IN 500MLS D5W ONE TIME DOSE IV
     Route: 042
     Dates: start: 20110315, end: 20110315

REACTIONS (4)
  - FLUSHING [None]
  - HYPERHIDROSIS [None]
  - DYSPNOEA [None]
  - CARDIO-RESPIRATORY ARREST [None]
